FAERS Safety Report 7250848-3 (Version None)
Quarter: 2011Q1

REPORT INFORMATION
  Report Type: 
  Country: None (occurrence: None)
  Receive Date: 20110128
  Receipt Date: 20110120
  Transmission Date: 20110831
  Serious: Yes (Other)
  Sender: FDA-Public Use
  Company Number: US-JNJFOC-20101208821

PATIENT
  Sex: Female
  Weight: 136.08 kg

DRUGS (8)
  1. LEVAQUIN [Suspect]
     Indication: ABSCESS
     Route: 048
  2. SIMPONI [Concomitant]
     Indication: ANKYLOSING SPONDYLITIS
     Route: 058
  3. LORTAB [Concomitant]
     Indication: PAIN
     Dosage: 10-500 MG
     Route: 048
  4. NEURONTIN [Concomitant]
     Indication: FIBROMYALGIA
     Dosage: 10-500 MG
     Route: 048
  5. NAPROXEN [Concomitant]
     Indication: ANTIINFLAMMATORY THERAPY
     Route: 048
  6. CYMBALTA [Concomitant]
     Indication: DEPRESSION
     Route: 048
  7. PROMETHAZINE [Concomitant]
     Indication: NAUSEA
     Route: 048
  8. CYMBALTA [Concomitant]
     Indication: FIBROMYALGIA
     Route: 048

REACTIONS (2)
  - JOINT RANGE OF MOTION DECREASED [None]
  - ARTHROPATHY [None]
